FAERS Safety Report 6158469-0 (Version None)
Quarter: 2009Q2

REPORT INFORMATION
  Report Type: 
  Country: None (occurrence: None)
  Receive Date: 20090417
  Receipt Date: 20090407
  Transmission Date: 20091009
  Serious: Yes (Hospitalization, Disabling, Other)
  Sender: FDA-Public Use
  Company Number: ES-AVENTIS-200913753GDDC

PATIENT
  Age: 59 Year
  Sex: Female
  Weight: 61 kg

DRUGS (4)
  1. DOCETAXEL [Suspect]
     Route: 042
     Dates: start: 20050617, end: 20050617
  2. OTHER ANTINEOPLASTIC AGENTS [Suspect]
     Route: 048
     Dates: start: 20050617
  3. ACETAMINOPHEN [Concomitant]
     Route: 048
     Dates: start: 20050621
  4. FILGRASTIM [Concomitant]
     Dates: start: 20050714, end: 20050718

REACTIONS (7)
  - ANAL ABSCESS [None]
  - ASTHENIA [None]
  - EPISTAXIS [None]
  - HAEMORRHOIDS [None]
  - NEUTROPENIA [None]
  - PALMAR-PLANTAR ERYTHRODYSAESTHESIA SYNDROME [None]
  - STOMATITIS [None]
